FAERS Safety Report 4942978-3 (Version None)
Quarter: 2006Q1

REPORT INFORMATION
  Report Type: 
  Country: None (occurrence: None)
  Receive Date: 20060314
  Receipt Date: 20060307
  Transmission Date: 20060701
  Serious: Yes (Other)
  Sender: FDA-Public Use
  Company Number: US-GLAXOSMITHKLINE-A0596501A

PATIENT
  Age: 24 Year
  Sex: Male

DRUGS (3)
  1. LAMICTAL [Suspect]
     Indication: EPILEPSY
     Dosage: 20MG THREE TIMES PER DAY
     Route: 048
     Dates: start: 20051219
  2. TOPAMAX [Concomitant]
  3. RISPERDAL [Concomitant]

REACTIONS (8)
  - ACNE [None]
  - COUGH [None]
  - DRUG INEFFECTIVE [None]
  - EARLY MORNING AWAKENING [None]
  - GRAND MAL CONVULSION [None]
  - RASH [None]
  - RETCHING [None]
  - SWOLLEN TONGUE [None]
